FAERS Safety Report 20189320 (Version 1)
Quarter: 2021Q4

REPORT INFORMATION
  Report Type: Spontaneous
  Country: GB (occurrence: GB)
  Receive Date: 20211215
  Receipt Date: 20211215
  Transmission Date: 20220304
  Serious: Yes (Other)
  Sender: FDA-Public Use
  Company Number: GB-GE HEALTHCARE-2021CSU006388

PATIENT

DRUGS (2)
  1. OMNIPAQUE [Suspect]
     Active Substance: IOHEXOL
     Indication: Computerised tomogram
     Dosage: 85 ML, SINGLE
     Route: 042
     Dates: start: 20211208, end: 20211208
  2. OMNIPAQUE [Suspect]
     Active Substance: IOHEXOL
     Indication: Atrial fibrillation

REACTIONS (2)
  - Malaise [Recovered/Resolved]
  - Erythema [Recovered/Resolved]

NARRATIVE: CASE EVENT DATE: 20211208
